FAERS Safety Report 25612976 (Version 2)
Quarter: 2025Q3

REPORT INFORMATION
  Report Type: Spontaneous
  Country: JP (occurrence: JP)
  Receive Date: 20250728
  Receipt Date: 20250821
  Transmission Date: 20251021
  Serious: Yes (Other)
  Sender: ABBVIE
  Company Number: JP-ABBVIE-6389210

PATIENT
  Sex: Female

DRUGS (1)
  1. SKYRIZI [Suspect]
     Active Substance: RISANKIZUMAB-RZAA
     Indication: Colitis ulcerative
     Route: 041
     Dates: start: 20250701

REACTIONS (4)
  - Gastrointestinal perforation [Unknown]
  - Colitis ulcerative [Unknown]
  - Cytomegalovirus infection reactivation [Unknown]
  - Surgery [Unknown]

NARRATIVE: CASE EVENT DATE: 20250101
